FAERS Safety Report 16741338 (Version 1)
Quarter: 2019Q4

REPORT INFORMATION
  Report Type: Spontaneous
  Country: US (occurrence: US)
  Receive Date: 20190826
  Receipt Date: 20190826
  Transmission Date: 20200122
  Serious: Yes (Hospitalization)
  Sender: FDA-Public Use
  Company Number: None

PATIENT
  Age: 17 Year
  Sex: Male

DRUGS (2)
  1. NEULASTA [Concomitant]
     Active Substance: PEGFILGRASTIM
     Dates: start: 20190801
  2. NEULASTA [Suspect]
     Active Substance: PEGFILGRASTIM
     Dosage: ?          OTHER FREQUENCY:1 SYR SQ EVERY 21;?
     Route: 058
     Dates: start: 20190801

REACTIONS (2)
  - Adverse drug reaction [None]
  - Hospitalisation [None]

NARRATIVE: CASE EVENT DATE: 20190823
